FAERS Safety Report 12329080 (Version 1)
Quarter: 2016Q2

REPORT INFORMATION
  Report Type: Other
  Country: JP (occurrence: JP)
  Receive Date: 20160503
  Receipt Date: 20160503
  Transmission Date: 20160815
  Serious: Yes (Hospitalization)
  Sender: FDA-Public Use
  Company Number: JP-WARNER CHILCOTT, LLC-1051355

PATIENT
  Age: 22 Year
  Sex: Female

DRUGS (1)
  1. MESALAZINE [Suspect]
     Active Substance: MESALAMINE
     Indication: COLITIS ULCERATIVE
     Route: 048

REACTIONS (6)
  - Pyrexia [Recovered/Resolved]
  - Cough [Recovered/Resolved]
  - Eosinophilic pneumonia [Recovered/Resolved]
  - Lung infiltration [Recovered/Resolved]
  - Pneumonia [Recovered/Resolved]
  - Lung consolidation [Recovered/Resolved]
